FAERS Safety Report 22304261 (Version 1)
Quarter: 2023Q2

REPORT INFORMATION
  Report Type: Spontaneous
  Country: US (occurrence: None)
  Receive Date: 20230509
  Receipt Date: 20230509
  Transmission Date: 20230721
  Serious: Yes (Other)
  Sender: FDA-Public Use
  Company Number: None

PATIENT
  Age: 76 Year
  Sex: Female
  Weight: 98.7 kg

DRUGS (1)
  1. ATEZOLIZUMAB [Suspect]
     Active Substance: ATEZOLIZUMAB
     Indication: Small cell lung cancer
     Route: 040
     Dates: start: 20230327, end: 20230502

REACTIONS (7)
  - Feeling hot [None]
  - Flushing [None]
  - Nausea [None]
  - Vomiting [None]
  - Dyspnoea [None]
  - Infusion related reaction [None]
  - Unresponsive to stimuli [None]

NARRATIVE: CASE EVENT DATE: 20230424
